FAERS Safety Report 9319726 (Version 1)
Quarter: 2013Q2

REPORT INFORMATION
  Report Type: Spontaneous
  Country: US (occurrence: US)
  Receive Date: 20130530
  Receipt Date: 20130530
  Transmission Date: 20140414
  Serious: Yes (Hospitalization)
  Sender: FDA-Public Use
  Company Number: US-GLAXOSMITHKLINE-A0791321A

PATIENT
  Age: 52 Year
  Sex: Male
  Weight: 138.6 kg

DRUGS (1)
  1. AVANDIA [Suspect]
     Indication: TYPE 2 DIABETES MELLITUS
     Dosage: 4MG PER DAY
     Route: 048
     Dates: start: 200611, end: 20070701

REACTIONS (3)
  - Myocardial infarction [Not Recovered/Not Resolved]
  - Graft dysfunction [Unknown]
  - Arteriosclerosis [Unknown]
